FAERS Safety Report 22138125 (Version 1)
Quarter: 2023Q1

REPORT INFORMATION
  Report Type: Report from Study
  Country: US (occurrence: US)
  Receive Date: 20230325
  Receipt Date: 20230325
  Transmission Date: 20230418
  Serious: No
  Sender: FDA-Public Use
  Company Number: US-002147023-NVSC2023US069788

PATIENT
  Sex: Female

DRUGS (2)
  1. VIJOICE [Suspect]
     Active Substance: ALPELISIB
     Indication: PIK3CA related overgrowth spectrum
     Dosage: 250 MG, QD
     Route: 048
     Dates: start: 20221129
  2. VIJOICE [Suspect]
     Active Substance: ALPELISIB
     Dosage: 125 MG
     Route: 048

REACTIONS (3)
  - Urticaria [Unknown]
  - Pyrexia [Unknown]
  - Product dispensing error [Unknown]
